FAERS Safety Report 8049822-9 (Version None)
Quarter: 2012Q1

REPORT INFORMATION
  Report Type: 
  Country: None (occurrence: None)
  Receive Date: 20120117
  Receipt Date: 20120106
  Transmission Date: 20120608
  Serious: Yes (Hospitalization)
  Sender: FDA-Public Use
  Company Number: US-ROCHE-1023227

PATIENT
  Sex: Female

DRUGS (2)
  1. ALBUTEROL SULFATE AUTOHALER [Concomitant]
  2. RANIBIZUMAB [Suspect]
     Indication: AGE-RELATED MACULAR DEGENERATION
     Dosage: FREQ: QMO, LAST DOSE PRIOR TO SAE 01 NOV 2011
     Route: 031
     Dates: start: 20110309

REACTIONS (5)
  - HYPONATRAEMIA [None]
  - CHRONIC OBSTRUCTIVE PULMONARY DISEASE [None]
  - RESPIRATORY FAILURE [None]
  - HYPOKALAEMIA [None]
  - RESPIRATORY TRACT INFECTION [None]
